FAERS Safety Report 5388934-5 (Version None)
Quarter: 2007Q3

REPORT INFORMATION
  Report Type: 
  Country: None (occurrence: None)
  Receive Date: 20070717
  Receipt Date: 20070705
  Transmission Date: 20080115
  Serious: Yes (Hospitalization)
  Sender: FDA-Public Use
  Company Number: PHEH2007US08734

PATIENT
  Age: 63 Year
  Sex: Female
  Weight: 85.26 kg

DRUGS (6)
  1. ZELNORM [Suspect]
     Indication: IRRITABLE BOWEL SYNDROME
     Dosage: 6 MG, QD
     Route: 048
     Dates: end: 20070401
  2. ALLEGRA [Concomitant]
  3. FLONASE [Concomitant]
  4. ASPIRIN [Concomitant]
     Dosage: 81 MG, UNK
  5. DIOVAN HCT [Concomitant]
  6. OMEPRAZOLE [Concomitant]
     Indication: GASTROOESOPHAGEAL REFLUX DISEASE
     Dosage: 20 MG, BID

REACTIONS (5)
  - AMNESIA [None]
  - APHASIA [None]
  - ATELECTASIS [None]
  - CARDIAC VALVE DISEASE [None]
  - HEADACHE [None]
